FAERS Safety Report 4896869-7 (Version None)
Quarter: 2006Q1

REPORT INFORMATION
  Report Type: 
  Country: None (occurrence: None)
  Receive Date: 20060126
  Receipt Date: 20060118
  Transmission Date: 20060701
  Serious: Yes (Hospitalization)
  Sender: FDA-Public Use
  Company Number: 200610010BVD

PATIENT
  Age: 71 Year
  Sex: Male
  Weight: 64.3 kg

DRUGS (9)
  1. SORAFENIB [Suspect]
     Indication: METASTATIC RENAL CELL CARCINOMA
     Dosage: SEE IMAGE
     Route: 048
     Dates: start: 20050912, end: 20051107
  2. SORAFENIB [Suspect]
     Indication: METASTATIC RENAL CELL CARCINOMA
     Dosage: SEE IMAGE
     Route: 048
     Dates: start: 20051107, end: 20060102
  3. SORAFENIB [Suspect]
     Indication: METASTATIC RENAL CELL CARCINOMA
     Dosage: SEE IMAGE
     Route: 048
     Dates: start: 20060113
  4. CYNT ^BEIERSDORF^ [Concomitant]
  5. MEBILET [Concomitant]
  6. AMLODIPINE [Concomitant]
  7. L-THYROXIN [Concomitant]
  8. ALLOPURINOL [Concomitant]
  9. BALDRIAN-DISPERT [Concomitant]

REACTIONS (2)
  - HEMIPARESIS [None]
  - METASTASES TO CENTRAL NERVOUS SYSTEM [None]
